FAERS Safety Report 8094510-6 (Version None)
Quarter: 2012Q1

REPORT INFORMATION
  Report Type: 
  Country: None (occurrence: None)
  Receive Date: 20120131
  Receipt Date: 20120123
  Transmission Date: 20120608
  Serious: Yes (Hospitalization)
  Sender: FDA-Public Use
  Company Number: IE-TEVA-319266ISR

PATIENT
  Age: 60 Year
  Sex: Male

DRUGS (3)
  1. ZOLPIDEM [Concomitant]
     Indication: DEPRESSION
     Route: 065
  2. ESCITALOPRAM [Concomitant]
     Indication: DEPRESSION
     Route: 065
  3. MELOXICAM [Suspect]
     Indication: ARTHRITIS
     Route: 065

REACTIONS (4)
  - MAJOR DEPRESSION [None]
  - RASH ERYTHEMATOUS [None]
  - SUICIDAL IDEATION [None]
  - BLOOD PRESSURE INCREASED [None]
